FAERS Safety Report 7361122-9 (Version None)
Quarter: 2011Q1

REPORT INFORMATION
  Report Type: 
  Country: None (occurrence: None)
  Receive Date: 20110318
  Receipt Date: 20110315
  Transmission Date: 20110831
  Serious: Yes (Hospitalization)
  Sender: FDA-Public Use
  Company Number: FR-ROCHE-765557

PATIENT
  Sex: Female

DRUGS (1)
  1. BONIVA [Suspect]
     Route: 042

REACTIONS (2)
  - HEPATITIS [None]
  - OROPHARYNGEAL PAIN [None]
